FAERS Safety Report 11214901 (Version 1)
Quarter: 2015Q2

REPORT INFORMATION
  Report Type: Spontaneous
  Country: JP (occurrence: JP)
  Receive Date: 20150624
  Receipt Date: 20150624
  Transmission Date: 20150821
  Serious: Yes (Other)
  Sender: FDA-Public Use
  Company Number: JP-JNJFOC-20150615311

PATIENT
  Age: 5 Decade
  Sex: Male

DRUGS (1)
  1. ZYTIGA [Suspect]
     Active Substance: ABIRATERONE ACETATE
     Indication: PROSTATE CANCER
     Route: 048
     Dates: start: 201411

REACTIONS (2)
  - Haemorrhagic diathesis [Not Recovered/Not Resolved]
  - Haemorrhage subcutaneous [Unknown]

NARRATIVE: CASE EVENT DATE: 20150615
